FAERS Safety Report 22266626 (Version 1)
Quarter: 2023Q2

REPORT INFORMATION
  Report Type: Spontaneous
  Country: IN (occurrence: IN)
  Receive Date: 20230428
  Receipt Date: 20230428
  Transmission Date: 20230721
  Serious: Yes (Other)
  Sender: FDA-Public Use
  Company Number: IN-MYLANLABS-2023M1045184

PATIENT
  Age: 17 Year
  Sex: Male
  Weight: 36.5 kg

DRUGS (14)
  1. LEVOTHYROXINE [Suspect]
     Active Substance: LEVOTHYROXINE
     Indication: Pseudohypoparathyroidism
     Dosage: UNK
     Route: 065
  2. LEVOTHYROXINE [Suspect]
     Active Substance: LEVOTHYROXINE
     Indication: Hypothyroidism
  3. LEVOTHYROXINE [Suspect]
     Active Substance: LEVOTHYROXINE
     Indication: Hypocalcaemia
  4. LEVOTHYROXINE [Suspect]
     Active Substance: LEVOTHYROXINE
     Indication: Dyskinesia
  5. CHOLECALCIFEROL [Suspect]
     Active Substance: CHOLECALCIFEROL
     Indication: Pseudohypoparathyroidism
     Dosage: UNK
     Route: 065
  6. CHOLECALCIFEROL [Suspect]
     Active Substance: CHOLECALCIFEROL
     Indication: Hypothyroidism
  7. CHOLECALCIFEROL [Suspect]
     Active Substance: CHOLECALCIFEROL
     Indication: Hypocalcaemia
  8. CHOLECALCIFEROL [Suspect]
     Active Substance: CHOLECALCIFEROL
     Indication: Dyskinesia
  9. CALCIUM [Suspect]
     Active Substance: CALCIUM
     Indication: Pseudohypoparathyroidism
     Dosage: UNK
     Route: 048
  10. CALCIUM [Suspect]
     Active Substance: CALCIUM
     Indication: Hypothyroidism
  11. CALCIUM [Suspect]
     Active Substance: CALCIUM
     Indication: Hypocalcaemia
  12. CALCIUM [Suspect]
     Active Substance: CALCIUM
     Indication: Dyskinesia
  13. OLANZAPINE [Concomitant]
     Active Substance: OLANZAPINE
     Indication: Dyskinesia
     Dosage: UNK
     Route: 048
  14. OXCARBAZEPINE [Concomitant]
     Active Substance: OXCARBAZEPINE
     Indication: Dyskinesia
     Dosage: UNK
     Route: 065

REACTIONS (3)
  - Dyskinesia [Recovered/Resolved]
  - Rebound effect [Recovered/Resolved]
  - Drug ineffective [Recovered/Resolved]
